FAERS Safety Report 7565513-2 (Version None)
Quarter: 2011Q2

REPORT INFORMATION
  Report Type: 
  Country: None (occurrence: None)
  Receive Date: 20110623
  Receipt Date: 20110617
  Transmission Date: 20111010
  Serious: No
  Sender: FDA-Public Use
  Company Number: US-BIOGENIDEC-2011BI022473

PATIENT
  Age: 39 Year
  Sex: Female

DRUGS (3)
  1. TYSABRI [Suspect]
     Indication: MULTIPLE SCLEROSIS
     Route: 042
     Dates: start: 20090115
  2. TYSABRI [Suspect]
     Route: 042
     Dates: start: 20061114, end: 20081202
  3. TYSABRI [Suspect]
     Route: 042
     Dates: start: 20050110

REACTIONS (2)
  - VITAMIN D DECREASED [None]
  - MULTIPLE SCLEROSIS RELAPSE [None]
